FAERS Safety Report 5217173-3 (Version None)
Quarter: 2007Q1

REPORT INFORMATION
  Report Type: 
  Country: None (occurrence: None)
  Receive Date: 20070123
  Receipt Date: 20070123
  Transmission Date: 20070707
  Serious: Yes (Hospitalization)
  Sender: FDA-Public Use
  Company Number: None

PATIENT
  Sex: Male
  Weight: 137.4399 kg

DRUGS (7)
  1. BACTRIM DS [Suspect]
     Indication: SKIN ULCER
     Dosage: ONE DS TABLET TWICE DAILY PO
     Route: 048
     Dates: start: 20061105, end: 20061116
  2. BACTRIM DS [Suspect]
     Indication: STAPHYLOCOCCAL INFECTION
     Dosage: ONE DS TABLET TWICE DAILY PO
     Route: 048
     Dates: start: 20061105, end: 20061116
  3. RANITIDINE [Concomitant]
  4. LIDOCAINE [Concomitant]
  5. LEVALBUTEROL HCL [Concomitant]
  6. IBUPROFEN [Concomitant]
  7. CALCIUM/VITAMIN D [Concomitant]

REACTIONS (3)
  - HAEMORRHAGE [None]
  - MOUTH ULCERATION [None]
  - RASH [None]
